FAERS Safety Report 9299070 (Version 1)
Quarter: 2013Q2

REPORT INFORMATION
  Report Type: Spontaneous
  Country: JP (occurrence: JP)
  Receive Date: 20130520
  Receipt Date: 20130520
  Transmission Date: 20140414
  Serious: Yes (Other)
  Sender: FDA-Public Use
  Company Number: JP-PFIZER INC-2013115037

PATIENT
  Age: 74 Year
  Sex: Male

DRUGS (3)
  1. LYRICA [Suspect]
     Indication: CENTRAL PAIN SYNDROME
     Dosage: 75 MG, 2X/DAY
     Route: 048
     Dates: start: 20130109, end: 20130206
  2. LYRICA [Suspect]
     Indication: NEURALGIA
  3. LIORESAL ^NOVARTIS^ [Concomitant]
     Indication: SPASTIC PARALYSIS
     Dosage: 5 MG, 4X/DAY
     Route: 048
     Dates: start: 20120611

REACTIONS (3)
  - Coordination abnormal [Recovering/Resolving]
  - Gait disturbance [Recovering/Resolving]
  - Illusion [Recovering/Resolving]
